FAERS Safety Report 6433607-0 (Version None)
Quarter: 2009Q4

REPORT INFORMATION
  Report Type: 
  Country: None (occurrence: None)
  Receive Date: 20091110
  Receipt Date: 20091104
  Transmission Date: 20100525
  Serious: Yes (Death)
  Sender: FDA-Public Use
  Company Number: CO-JNJFOC-20091102278

PATIENT
  Age: 50 Year
  Sex: Male

DRUGS (2)
  1. DORIBAX [Suspect]
     Indication: SEPTIC SHOCK
     Route: 041
     Dates: start: 20091028, end: 20091030
  2. OXACILLIN [Concomitant]

REACTIONS (2)
  - ENDOCARDITIS BACTERIAL [None]
  - OFF LABEL USE [None]
